FAERS Safety Report 5994408-0 (Version None)
Quarter: 2008Q4

REPORT INFORMATION
  Report Type: 
  Country: None (occurrence: None)
  Receive Date: 20081212
  Receipt Date: 20080905
  Transmission Date: 20090506
  Serious: No
  Sender: FDA-Public Use
  Company Number: US-ABBOTT-08P-163-0475149-00

PATIENT
  Sex: Female
  Weight: 66.738 kg

DRUGS (6)
  1. HUMIRA [Suspect]
     Indication: PSORIATIC ARTHROPATHY
     Route: 058
     Dates: start: 20080401, end: 20080605
  2. HUMIRA [Suspect]
     Route: 058
     Dates: start: 20080605
  3. SIMVASTATIN [Concomitant]
     Indication: BLOOD CHOLESTEROL INCREASED
     Route: 048
  4. GLYPARAMIDE [Concomitant]
     Indication: DIABETES MELLITUS
     Route: 048
     Dates: start: 20040101
  5. ACETONEL [Concomitant]
     Indication: PROPHYLAXIS
     Route: 048
     Dates: start: 20020101
  6. VAGISEM [Concomitant]
     Indication: VULVOVAGINAL DRYNESS
     Dates: start: 20020101

REACTIONS (2)
  - INJECTION SITE REACTION [None]
  - PSORIASIS [None]
